FAERS Safety Report 8619887 (Version 3)
Quarter: 2013Q4

REPORT INFORMATION
  Report Type: Spontaneous
  Country: US (occurrence: US)
  Receive Date: 20120618
  Receipt Date: 20131031
  Transmission Date: 20140711
  Serious: No
  Sender: FDA-Public Use
  Company Number: US-PFIZER INC-2012145130

PATIENT
  Age: 34 Year
  Sex: Female
  Weight: 49.89 kg

DRUGS (15)
  1. LYRICA [Suspect]
     Indication: FIBROMYALGIA
     Dosage: 75 MG, 3X/DAY (MORNING: 1 TABLET, NOON: 1 TABLET, EVENING: 1 TABLET)
     Dates: start: 201004
  2. LYRICA [Suspect]
     Indication: PAIN
  3. LYRICA [Suspect]
     Indication: NEUROPATHY PERIPHERAL
  4. TRAZODONE [Concomitant]
     Indication: INSOMNIA
     Dosage: 50 MG, DAILY
  5. CYMBALTA [Concomitant]
     Indication: DEPRESSION
     Dosage: 20 MG, 2X/DAY
     Dates: start: 201006
  6. CYMBALTA [Concomitant]
     Indication: PAIN
     Dosage: 30 MG, 1 TABLET (MORNING: 1 TABLET, EVENING: 1 TABLET)
  7. TRAMADOL [Concomitant]
     Indication: PAIN
     Dosage: 50 MG, 4X/DAY
     Dates: start: 201011
  8. DICYCLOMINE [Concomitant]
     Indication: IRRITABLE BOWEL SYNDROME
     Dosage: 20 MG, 4X/DAY
  9. PRILOSEC [Concomitant]
     Indication: GASTROOESOPHAGEAL REFLUX DISEASE
     Dosage: 20 MG, 1 CAPSULE (MORNING: 1 CAPSULE
  10. CLARITIN [Concomitant]
     Indication: PARANASAL SINUS HYPERSECRETION
     Dosage: 10 MG, AS NEEDED (MORNING: 1 TABLET
  11. CLARITIN [Concomitant]
     Indication: HYPERSENSITIVITY
  12. VITAMIN B12 [Concomitant]
     Dosage: 1000 MCG/CC MONTHLY
  13. ULTRAM [Concomitant]
     Indication: PAIN
     Dosage: 50 MG, 4X/DAY
     Dates: start: 20120214
  14. PROVENTIL INHALER [Concomitant]
     Dosage: 90 UG, UNK (2 PUFFS, MEDICINE: PROVENTIL HFA INHALER 90 MCG)
  15. MOTRIN [Concomitant]
     Indication: ANTIINFLAMMATORY THERAPY
     Dosage: 800 MG, 3X/DAY (AFTER MEAL)

REACTIONS (2)
  - Gastrooesophageal reflux disease [Not Recovered/Not Resolved]
  - Pain [Not Recovered/Not Resolved]
